FAERS Safety Report 6263279-X (Version None)
Quarter: 2009Q3

REPORT INFORMATION
  Report Type: 
  Country: None (occurrence: None)
  Receive Date: 20090708
  Receipt Date: 20090708
  Transmission Date: 20100115
  Serious: No
  Sender: FDA-Public Use
  Company Number: None

PATIENT
  Sex: Male
  Weight: 117.2 kg

DRUGS (9)
  1. RALTEGRAVIR [Suspect]
     Indication: HIV INFECTION
     Dosage: 400MG BID PO
     Route: 048
     Dates: start: 20090105, end: 20090629
  2. TRUVADA [Concomitant]
  3. SINGULAIR [Concomitant]
  4. FIBERCON [Concomitant]
  5. DOCUSATE [Concomitant]
  6. PERCOCET [Concomitant]
  7. BACLOFEN [Concomitant]
  8. NORTRIPTYLINE HCL [Concomitant]
  9. NAPROXEN [Concomitant]

REACTIONS (1)
  - DERMATITIS BULLOUS [None]
